FAERS Safety Report 5425618-9 (Version None)
Quarter: 2007Q3

REPORT INFORMATION
  Report Type: 
  Country: None (occurrence: None)
  Receive Date: 20070731
  Receipt Date: 20070403
  Transmission Date: 20080115
  Serious: No
  Sender: FDA-Public Use
  Company Number: US200704001015

PATIENT
  Age: 55 Year
  Sex: Male

DRUGS (12)
  1. BYETTA [Suspect]
     Indication: TYPE 2 DIABETES MELLITUS
     Dosage: 5 UG, EACH EVENING, SUBCUTANEOUS ; 5 UG, 2/D, SUBCUTANEOUS
     Route: 058
     Dates: start: 20061204, end: 20061205
  2. BYETTA [Suspect]
     Indication: TYPE 2 DIABETES MELLITUS
     Dosage: 5 UG, EACH EVENING, SUBCUTANEOUS ; 5 UG, 2/D, SUBCUTANEOUS
     Route: 058
     Dates: start: 20061206, end: 20061207
  3. BYETTA [Suspect]
     Dosage: 10 UG, DAILY (1/D), SUBCUTANEOUS ; 10 UG, EACH MORNING, SUBCUTANEOUS
     Route: 058
     Dates: start: 20061209, end: 20061210
  4. BYETTA [Suspect]
     Dosage: 10 UG, DAILY (1/D), SUBCUTANEOUS ; 10 UG, EACH MORNING, SUBCUTANEOUS
     Route: 058
     Dates: start: 20061208
  5. BYETTA [Suspect]
     Dosage: 5 UG, EACH EVENING, SUBCUTANEOUS
     Route: 058
  6. BYETTA [Suspect]
     Dosage: 10 UG, 2/D, SUBCUTANEOUS
     Route: 058
     Dates: start: 20061211, end: 20061217
  7. BYETTA [Suspect]
     Dosage: 5 UG, 2/D, SUBCUTANEOUS ; 5 UG, EACH MORNING, SUBCUTANEOUS
     Route: 058
     Dates: start: 20060102, end: 20060311
  8. BYETTA [Suspect]
     Dosage: 10 UG, EACH EVENING, SUBCUTANEOUS ; 10 UG, 2/D, SUBCUTANEOUS
     Route: 058
     Dates: start: 20070312
  9. EXENATIDE 5MCG PEN, DISPOSABLE DEVICE (EXENATIDE PEN (5MCG)) PEN,DISPO [Concomitant]
  10. METFORMIN HCL [Concomitant]
  11. LEVEMIR (INSULIN DETEMIR) [Concomitant]
  12. NOVOLOG [Concomitant]

REACTIONS (6)
  - CHILLS [None]
  - DECREASED APPETITE [None]
  - HYPOGLYCAEMIA [None]
  - NAUSEA [None]
  - VOMITING [None]
  - WEIGHT DECREASED [None]
